FAERS Safety Report 21087694 (Version 1)
Quarter: 2022Q3

REPORT INFORMATION
  Report Type: Report from Study
  Country: US (occurrence: None)
  Receive Date: 20220715
  Receipt Date: 20220715
  Transmission Date: 20221027
  Serious: Yes (Other)
  Sender: FDA-Public Use
  Company Number: 2022A246766

PATIENT
  Age: 206 Month
  Sex: Male
  Weight: 76.7 kg

DRUGS (6)
  1. SELUMETINIB [Suspect]
     Active Substance: SELUMETINIB
     Indication: Glioma
     Dosage: 2150 MG
     Route: 048
     Dates: start: 20220519, end: 20220609
  2. PANTOPRAZOLE [Concomitant]
     Active Substance: PANTOPRAZOLE
  3. SERTRALINE [Concomitant]
     Active Substance: SERTRALINE HYDROCHLORIDE
  4. KETACONAZOLE 2%/ CLOBETASOL 0.05%/ FUCIDIN OINTMENT COMPOUND [Concomitant]
  5. ISOTRETINOIN [Concomitant]
     Active Substance: ISOTRETINOIN
  6. CETIRIZINE [Concomitant]
     Active Substance: CETIRIZINE HYDROCHLORIDE

REACTIONS (1)
  - Paronychia [Recovering/Resolving]

NARRATIVE: CASE EVENT DATE: 20220616
